FAERS Safety Report 11428257 (Version 1)
Quarter: 2015Q3

REPORT INFORMATION
  Report Type: Spontaneous
  Country: US (occurrence: US)
  Receive Date: 20150828
  Receipt Date: 20150828
  Transmission Date: 20151125
  Serious: No
  Sender: FDA-Public Use
  Company Number: US-ROCHE-1264126

PATIENT
  Sex: Female

DRUGS (3)
  1. PEGASYS [Suspect]
     Active Substance: PEGINTERFERON ALFA-2A
     Indication: HEPATITIS C
     Dosage: PRO-CLICK
     Route: 065
     Dates: start: 20130524
  2. TELAPREVIR [Suspect]
     Active Substance: TELAPREVIR
     Indication: HEPATITIS C
     Route: 065
     Dates: start: 20130524
  3. RIBAVIRIN. [Suspect]
     Active Substance: RIBAVIRIN
     Indication: HEPATITIS C
     Dosage: 2 IN AM AND 2 IN PM
     Route: 065
     Dates: start: 20130524

REACTIONS (10)
  - Pain [Unknown]
  - Decreased appetite [Unknown]
  - Cerebrovascular accident [Unknown]
  - Depression [Unknown]
  - Anger [Unknown]
  - Wrong technique in product usage process [Unknown]
  - Blindness unilateral [Unknown]
  - Abnormal behaviour [Unknown]
  - Malaise [Unknown]
  - Asthenia [Unknown]
